FAERS Safety Report 11216868 (Version 1)
Quarter: 2015Q2

REPORT INFORMATION
  Report Type: Spontaneous
  Country: US (occurrence: US)
  Receive Date: 20150624
  Receipt Date: 20150624
  Transmission Date: 20150821
  Serious: Yes (Other)
  Sender: FDA-Public Use
  Company Number: US-PFIZER INC-2015206182

PATIENT
  Age: 55 Year
  Sex: Female

DRUGS (12)
  1. EPINEPHRINE. [Suspect]
     Active Substance: EPINEPHRINE
     Dosage: 1:200,000
     Route: 065
  2. LIDOCAINE HYDROCHLORIDE. [Concomitant]
     Active Substance: LIDOCAINE HYDROCHLORIDE
     Dosage: 12CC 1%
  3. DIAZEPAM. [Concomitant]
     Active Substance: DIAZEPAM
     Dosage: 12.5 MG, UNK
  4. LIDOCAINE HYDROCHLORIDE. [Concomitant]
     Active Substance: LIDOCAINE HYDROCHLORIDE
     Dosage: 40CC 1/2%
  5. EPINEPHRINE. [Suspect]
     Active Substance: EPINEPHRINE
     Dosage: 1:100,000
  6. DEMEROL [Concomitant]
     Active Substance: MEPERIDINE HYDROCHLORIDE
     Dosage: 100 MG, UNK
     Route: 030
  7. SECONAL /00048601/ [Concomitant]
     Dosage: 100 MG, UNK
     Route: 048
  8. MEPERIDINE [Concomitant]
     Active Substance: MEPERIDINE
     Dosage: 20 MG, UNK
     Route: 042
  9. PROPANOLOL HCL [Suspect]
     Active Substance: PROPRANOLOL HYDROCHLORIDE
     Indication: MIGRAINE
     Dosage: 40 MG, 2X/DAY
     Route: 065
  10. VISTARIL [Concomitant]
     Active Substance: HYDROXYZINE PAMOATE
     Dosage: 100 MG, UNK
     Route: 030
  11. LNNOVAR [Concomitant]
  12. FENTANYL. [Concomitant]
     Active Substance: FENTANYL
     Dosage: 2 MG, UNK

REACTIONS (3)
  - Drug interaction [Recovered/Resolved]
  - Blood pressure increased [Recovered/Resolved]
  - Bradycardia [Recovered/Resolved]
